FAERS Safety Report 5232354-0 (Version None)
Quarter: 2007Q1

REPORT INFORMATION
  Report Type: 
  Country: None (occurrence: None)
  Receive Date: 20070207
  Receipt Date: 20070124
  Transmission Date: 20070707
  Serious: Yes (Other)
  Sender: FDA-Public Use
  Company Number: GBWYE326424JAN07

PATIENT
  Age: 35 Year
  Sex: Male

DRUGS (3)
  1. ENBREL [Suspect]
     Indication: POLYARTHRITIS
     Route: 058
     Dates: start: 20050401, end: 20061201
  2. PREDNISOLONE [Concomitant]
     Indication: POLYARTHRITIS
     Route: 048
  3. METHOTREXATE [Concomitant]
     Indication: POLYARTHRITIS
     Route: 048

REACTIONS (1)
  - IRIDOCYCLITIS [None]
